FAERS Safety Report 6242654-3 (Version None)
Quarter: 2009Q2

REPORT INFORMATION
  Report Type: 
  Country: None (occurrence: None)
  Receive Date: 20090624
  Receipt Date: 20090610
  Transmission Date: 20091009
  Serious: Yes (Hospitalization, Other)
  Sender: FDA-Public Use
  Company Number: AU-JNJFOC-20090605741

PATIENT
  Age: 33 Year
  Sex: Female

DRUGS (1)
  1. RISPERIDONE [Suspect]
     Indication: SCHIZOPHRENIA
     Route: 065

REACTIONS (5)
  - GALACTORRHOEA [None]
  - HOSPITALISATION [None]
  - HYPERPROLACTINAEMIA [None]
  - MENSTRUATION IRREGULAR [None]
  - PITUITARY TUMOUR BENIGN [None]
